FAERS Safety Report 5530943-7 (Version None)
Quarter: 2007Q4

REPORT INFORMATION
  Report Type: 
  Country: None (occurrence: None)
  Receive Date: 20071130
  Receipt Date: 20071120
  Transmission Date: 20080405
  Serious: Yes (Hospitalization, Other)
  Sender: FDA-Public Use
  Company Number: US-PFIZER INC-2007075530

PATIENT
  Age: 62 Year
  Sex: Male

DRUGS (2)
  1. VFEND [Suspect]
  2. VYTORIN [Suspect]
     Dosage: TEXT:UNIT DOSE 10/80
     Dates: end: 20070529

REACTIONS (8)
  - ALANINE AMINOTRANSFERASE INCREASED [None]
  - ASPARTATE AMINOTRANSFERASE INCREASED [None]
  - ASPERGILLOSIS [None]
  - BLOOD CREATINE PHOSPHOKINASE INCREASED [None]
  - CHRONIC OBSTRUCTIVE PULMONARY DISEASE [None]
  - CYTOMEGALOVIRUS INFECTION [None]
  - ILL-DEFINED DISORDER [None]
  - STAPHYLOCOCCAL INFECTION [None]
